FAERS Safety Report 8391488-2 (Version None)
Quarter: 2012Q1

REPORT INFORMATION
  Report Type: 
  Country: None (occurrence: None)
  Receive Date: 20120323
  Receipt Date: 20110509
  Transmission Date: 20120608
  Serious: Yes (Hospitalization)
  Sender: FDA-Public Use
  Company Number: 163-21880-11042069

PATIENT
  Age: 77 Year
  Sex: Female
  Weight: 61.2356 kg

DRUGS (11)
  1. SAM-E.P.A (ALL OTHER THERAPEUTIC PRODUCTS) (UNKNOWN) [Concomitant]
  2. ATIVAN [Concomitant]
  3. INDERAL (PROPRANOLOL HYDROCHLORIDE) (UNKNOWN) [Concomitant]
  4. ZOMETA [Concomitant]
  5. EPIPEN (EPINEPHRINE) (UNKNOWN) [Concomitant]
  6. VITAMIN D (ERGOCALCIFEROL) (UNKNOWN) [Concomitant]
  7. ASPIRIN [Concomitant]
  8. BIAXIN (CLARITHROMYCIN) (UNKNNOWN) [Concomitant]
  9. REVLIMID [Suspect]
     Indication: MULTIPLE MYELOMA
     Dosage: 25 MG, DAILY FOR 21 DAYS, PO
     Route: 048
     Dates: start: 20100629, end: 20110328
  10. GLUTAMINE (LEVOGLUTAMIDE) (UNKNOWN) [Concomitant]
  11. PRILOSEC (OMEPRAZOLE) (UNKNOWN) [Concomitant]

REACTIONS (1)
  - PNEUMONIA [None]
